FAERS Safety Report 22245906 (Version 2)
Quarter: 2023Q2

REPORT INFORMATION
  Report Type: Spontaneous
  Country: US (occurrence: US)
  Receive Date: 20230424
  Receipt Date: 20230608
  Transmission Date: 20230722
  Serious: Yes (Death, Other)
  Sender: FDA-Public Use
  Company Number: US-Merck Healthcare KGaA-9397117

PATIENT
  Age: 64 Year
  Sex: Male

DRUGS (1)
  1. BAVENCIO [Suspect]
     Active Substance: AVELUMAB
     Indication: Transitional cell carcinoma
     Dates: start: 202212

REACTIONS (2)
  - Death [Fatal]
  - Tumour hyperprogression [Unknown]

NARRATIVE: CASE EVENT DATE: 20230413
